FAERS Safety Report 6276346-1 (Version None)
Quarter: 2009Q3

REPORT INFORMATION
  Report Type: 
  Country: None (occurrence: None)
  Receive Date: 20090720
  Receipt Date: 20090720
  Transmission Date: 20100115
  Serious: Yes (Hospitalization)
  Sender: FDA-Public Use
  Company Number: None

PATIENT
  Age: 75 Year
  Sex: Male
  Weight: 130.6 kg

DRUGS (2)
  1. LISINOPRIL [Suspect]
     Indication: HYPERTENSION
     Dosage: 40 MG EVERY DAY PO
     Route: 048
     Dates: start: 19980205, end: 20090715
  2. SPIRONOLACTONE [Suspect]
     Indication: DIURETIC THERAPY
     Dosage: 25 MG EVERY DAY PO
     Route: 048
     Dates: start: 20080116, end: 20090715

REACTIONS (2)
  - HYPERKALAEMIA [None]
  - HYPOTENSION [None]
